FAERS Safety Report 10016733 (Version 2)
Quarter: 2014Q1

REPORT INFORMATION
  Report Type: Spontaneous
  Country: JP (occurrence: JP)
  Receive Date: 20140318
  Receipt Date: 20140321
  Transmission Date: 20141002
  Serious: Yes (Other)
  Sender: FDA-Public Use
  Company Number: PHHY2014JP030964

PATIENT
  Age: 37 Year
  Sex: Female

DRUGS (6)
  1. CICLOSPORIN [Suspect]
     Indication: PROPHYLAXIS AGAINST GRAFT VERSUS HOST DISEASE
  2. CICLOSPORIN [Suspect]
     Indication: APLASTIC ANAEMIA
  3. METHOTREXATE [Suspect]
     Indication: PROPHYLAXIS AGAINST GRAFT VERSUS HOST DISEASE
  4. FLUDARABINE [Suspect]
     Dosage: 180 MG/M2, UNK
  5. ANTITHYMOCYTE IMMUNOGLOBULIN [Suspect]
     Indication: APLASTIC ANAEMIA
  6. CYCLOPHOSPHAMIDE [Suspect]
     Dosage: 120 MG/KG, UNK

REACTIONS (5)
  - Posterior reversible encephalopathy syndrome [Unknown]
  - Graft versus host disease [Unknown]
  - Status epilepticus [Unknown]
  - Depressed level of consciousness [Unknown]
  - Drug ineffective [Unknown]
